FAERS Safety Report 23783216 (Version 4)
Quarter: 2024Q3

REPORT INFORMATION
  Report Type: Report from Study
  Country: NL (occurrence: NL)
  Receive Date: 20240425
  Receipt Date: 20240729
  Transmission Date: 20241016
  Serious: Yes (Hospitalization, Other)
  Sender: AMGEN
  Company Number: NL-UCBSA-2024019165

PATIENT
  Age: 80 Year
  Sex: Female

DRUGS (2)
  1. EVENITY [Suspect]
     Active Substance: ROMOSOZUMAB-AQQG
     Indication: Osteoporosis
     Dosage: 210 MILLIGRAM, MONTHLY (QM)
     Route: 065
     Dates: start: 20240111
  2. EVENITY [Suspect]
     Active Substance: ROMOSOZUMAB-AQQG
     Dosage: 210 MILLIGRAM, MONTHLY (QM)
     Route: 065
     Dates: start: 20240111

REACTIONS (10)
  - Cardiac failure [Not Recovered/Not Resolved]
  - Pneumonia [Unknown]
  - Rhinovirus infection [Unknown]
  - Blood urine present [Unknown]
  - Chest pain [Unknown]
  - Cystitis [Recovered/Resolved]
  - Heart rate decreased [Recovered/Resolved]
  - Hypotension [Recovered/Resolved]
  - Fluid retention [Not Recovered/Not Resolved]
  - Cardiac pacemaker insertion [Unknown]

NARRATIVE: CASE EVENT DATE: 20240101
